FAERS Safety Report 8349762-1 (Version None)
Quarter: 2012Q2

REPORT INFORMATION
  Report Type: 
  Country: None (occurrence: None)
  Receive Date: 20120510
  Receipt Date: 20120503
  Transmission Date: 20120825
  Serious: Yes (Hospitalization)
  Sender: FDA-Public Use
  Company Number: US-BAYER-2011-053130

PATIENT
  Age: 47 Year
  Sex: Female
  Weight: 56.689 kg

DRUGS (3)
  1. DROSPIRENONE AND ETHINYL ESTRADIOL [Suspect]
     Indication: CONTRACEPTION
     Dosage: UNK
     Route: 048
     Dates: start: 20080827, end: 20090602
  2. MULTI-VITAMINS [Concomitant]
     Indication: CONTRACEPTION
  3. YASMIN [Suspect]
     Indication: CONTRACEPTION
     Dosage: UNK
     Route: 048
     Dates: start: 20051028, end: 20080827

REACTIONS (8)
  - DEEP VEIN THROMBOSIS [None]
  - PULMONARY EMBOLISM [None]
  - PULMONARY INFARCTION [None]
  - INJURY [None]
  - PLEURITIC PAIN [None]
  - PAIN [None]
  - LUNG INFILTRATION [None]
  - DYSPNOEA [None]
